FAERS Safety Report 10448220 (Version 6)
Quarter: 2015Q1

REPORT INFORMATION
  Report Type: Report from Study
  Country: FR (occurrence: FR)
  Receive Date: 20140911
  Receipt Date: 20150326
  Transmission Date: 20150720
  Serious: Yes (Hospitalization, Other)
  Sender: FDA-Public Use
  Company Number: FR-ROCHE-1447752

PATIENT
  Age: 69 Year
  Sex: Male
  Weight: 65 kg

DRUGS (4)
  1. RANIBIZUMAB [Suspect]
     Active Substance: RANIBIZUMAB
     Indication: VISUAL IMPAIRMENT
     Dosage: IN THE RIGHT EYE
     Route: 050
     Dates: start: 20140226
  2. RANIBIZUMAB [Suspect]
     Active Substance: RANIBIZUMAB
     Indication: RETINAL VEIN OCCLUSION
     Dosage: IN THE RIGHT EYE
     Route: 050
     Dates: start: 20140128
  3. COVERSYL [Concomitant]
     Active Substance: PERINDOPRIL
     Indication: HYPERTENSION
     Route: 048
     Dates: start: 201401
  4. RANIBIZUMAB [Suspect]
     Active Substance: RANIBIZUMAB
     Dosage: IN THE RIGHT EYE
     Route: 050
     Dates: start: 20140409

REACTIONS (3)
  - Squamous cell carcinoma [Unknown]
  - Retinal ischaemia [Not Recovered/Not Resolved]
  - Macular ischaemia [Not Recovered/Not Resolved]

NARRATIVE: CASE EVENT DATE: 20140502
